FAERS Safety Report 13428617 (Version 2)
Quarter: 2017Q2

REPORT INFORMATION
  Report Type: Spontaneous
  Country: US (occurrence: US)
  Receive Date: 20170411
  Receipt Date: 20170421
  Transmission Date: 20170830
  Serious: Yes (Hospitalization, Other)
  Sender: FDA-Public Use
  Company Number: US-VIFOR (INTERNATIONAL) INC.-VIT-2017-03802

PATIENT
  Sex: Male

DRUGS (8)
  1. VELTASSA [Suspect]
     Active Substance: PATIROMER
     Indication: HYPERKALAEMIA
     Route: 048
     Dates: start: 20160319, end: 20170413
  2. COLCHICINE. [Concomitant]
     Active Substance: COLCHICINE
  3. CALCITRIOL. [Concomitant]
     Active Substance: CALCITRIOL
  4. COREG [Concomitant]
     Active Substance: CARVEDILOL
  5. FUROSEMIDE. [Concomitant]
     Active Substance: FUROSEMIDE
  6. TAMSULOSIN HYDROCHLORIDE. [Concomitant]
     Active Substance: TAMSULOSIN HYDROCHLORIDE
  7. SODIUM BICARBONATE. [Concomitant]
     Active Substance: SODIUM BICARBONATE
  8. LEVEMIR [Concomitant]
     Active Substance: INSULIN DETEMIR

REACTIONS (2)
  - Hospitalisation [Unknown]
  - Dialysis [Unknown]
